FAERS Safety Report 25834983 (Version 1)
Quarter: 2025Q3

REPORT INFORMATION
  Report Type: Spontaneous
  Country: GB (occurrence: GB)
  Receive Date: 20250923
  Receipt Date: 20250923
  Transmission Date: 20251020
  Serious: Yes (Other)
  Sender: ACCORD
  Company Number: None

PATIENT
  Age: 77 Year
  Sex: Male
  Weight: 78 kg

DRUGS (4)
  1. AMITRIPTYLINE [Suspect]
     Active Substance: AMITRIPTYLINE
     Indication: Product used for unknown indication
     Dosage: ONE TO BE TAKEN AT NIGHT
     Dates: start: 20250708
  2. COCODAMOL [Concomitant]
     Active Substance: ACETAMINOPHEN\CODEINE PHOSPHATE
     Indication: Back pain
     Dates: start: 20250521
  3. CLOBETASONE [Concomitant]
     Active Substance: CLOBETASONE
     Dosage: APPLY THINLY TWICE A DAY FOR NO MORE THAN 2 WEEKS
     Dates: start: 20250616
  4. GABAPENTIN [Concomitant]
     Active Substance: GABAPENTIN
     Dosage: ONE TO BE TAKEN THREE TIMES A DAY

REACTIONS (1)
  - Joint swelling [Unknown]
